FAERS Safety Report 21990236 (Version 2)
Quarter: 2023Q1

REPORT INFORMATION
  Report Type: Spontaneous
  Country: GB (occurrence: GB)
  Receive Date: 20230214
  Receipt Date: 20230217
  Transmission Date: 20230418
  Serious: Yes (Other)
  Sender: FDA-Public Use
  Company Number: GB-SAMSUNG BIOEPIS-SB-2023-03843

PATIENT
  Age: 20 Year
  Sex: Male

DRUGS (11)
  1. INFLIXIMAB [Suspect]
     Active Substance: INFLIXIMAB
     Indication: Blau syndrome
     Dosage: UNKNOWN HIGH-DOSE
     Route: 065
  2. INFLIXIMAB [Suspect]
     Active Substance: INFLIXIMAB
     Route: 065
  3. ADALIMUMAB [Suspect]
     Active Substance: ADALIMUMAB
     Indication: Blau syndrome
     Dosage: UNKNOWN
     Route: 065
  4. METHOTREXATE [Suspect]
     Active Substance: METHOTREXATE
     Indication: Blau syndrome
     Dosage: UNKNOWN
     Route: 048
  5. METHOTREXATE [Suspect]
     Active Substance: METHOTREXATE
     Route: 065
  6. TOFACITINIB [Suspect]
     Active Substance: TOFACITINIB
     Indication: Blau syndrome
     Dosage: UNKNOWN
     Route: 065
  7. AZATHIOPRINE [Concomitant]
     Active Substance: AZATHIOPRINE
     Indication: Blau syndrome
     Dosage: UNKNOWN
     Route: 065
  8. PREDNISOLONE [Concomitant]
     Active Substance: PREDNISOLONE
     Indication: Blau syndrome
     Dosage: WEANED, DOSE REDUCED
     Route: 065
  9. LEFLUNOMIDE [Concomitant]
     Active Substance: LEFLUNOMIDE
     Indication: Blau syndrome
     Dosage: UNKNOWN
     Route: 065
  10. MYCOPHENOLATE MOFETIL [Concomitant]
     Active Substance: MYCOPHENOLATE MOFETIL
     Indication: Blau syndrome
     Dosage: UNKNOWN
     Route: 065
  11. BARICITINIB [Concomitant]
     Active Substance: BARICITINIB
     Indication: Blau syndrome
     Dosage: UNKNOWN
     Route: 065

REACTIONS (12)
  - Blau syndrome [Recovering/Resolving]
  - Beta haemolytic streptococcal infection [Unknown]
  - Cushingoid [Unknown]
  - Appendicectomy [Unknown]
  - Guttate psoriasis [Unknown]
  - Injection site reaction [Unknown]
  - Drug specific antibody present [Unknown]
  - Nausea [Unknown]
  - Headache [Unknown]
  - Pilonidal disease [Unknown]
  - Depression [Unknown]
  - Product use in unapproved indication [Unknown]
